FAERS Safety Report 4278912-1 (Version None)
Quarter: 2004Q1

REPORT INFORMATION
  Report Type: 
  Country: None (occurrence: None)
  Receive Date: 20040126
  Receipt Date: 20031218
  Transmission Date: 20041129
  Serious: Yes (Other)
  Sender: FDA-Public Use
  Company Number: PHEH2003US11644

PATIENT
  Age: 23 Year
  Sex: Female
  Weight: 54 kg

DRUGS (4)
  1. ZELNORM [Suspect]
     Indication: IRRITABLE BOWEL SYNDROME
     Dosage: 6 MG, BID
     Route: 048
     Dates: start: 20031007, end: 20031112
  2. LAMICTAL [Concomitant]
     Dosage: 300 MG, BID
     Route: 048
  3. SEROQUEL [Concomitant]
     Indication: BIPOLAR DISORDER
     Dosage: 150 MG, QD
     Route: 048
  4. XANAX [Concomitant]
     Dosage: UNK, PRN

REACTIONS (3)
  - CONDITION AGGRAVATED [None]
  - DRUG INTERACTION [None]
  - MANIA [None]
